FAERS Safety Report 17756196 (Version 1)
Quarter: 2020Q2

REPORT INFORMATION
  Report Type: Spontaneous
  Country: SI (occurrence: SI)
  Receive Date: 20200507
  Receipt Date: 20200507
  Transmission Date: 20200714
  Serious: Yes (Hospitalization)
  Sender: FDA-Public Use
  Company Number: SI-BAYER-2020-072339

PATIENT
  Age: 57 Year
  Sex: Female

DRUGS (7)
  1. MAGNESIUM SULFATE. [Concomitant]
     Active Substance: MAGNESIUM SULFATE
  2. FRAXIPARINE [Concomitant]
     Active Substance: NADROPARIN CALCIUM
  3. CHLOROQUINE. [Suspect]
     Active Substance: CHLOROQUINE
     Indication: CORONAVIRUS INFECTION
     Dosage: EXPERIMENTAL THERAPY: 1G, THEN 500 MG/12H
     Route: 048
     Dates: start: 20200406, end: 20200409
  4. KVENTIAX [Concomitant]
     Active Substance: QUETIAPINE FUMARATE
     Dosage: IN THE EVENING
  5. PANTOPRAZOLE [Concomitant]
     Active Substance: PANTOPRAZOLE
  6. HELEX [Concomitant]
     Active Substance: ALPRAZOLAM
     Dosage: IN THE EVENING
  7. LEKADOL [Concomitant]
     Active Substance: ACETAMINOPHEN

REACTIONS (1)
  - Electrocardiogram QT prolonged [Recovered/Resolved]

NARRATIVE: CASE EVENT DATE: 20200408
